FAERS Safety Report 24976710 (Version 9)
Quarter: 2025Q3

REPORT INFORMATION
  Report Type: Report from Study
  Country: US (occurrence: US)
  Receive Date: 20250217
  Receipt Date: 20250819
  Transmission Date: 20251020
  Serious: Yes (Hospitalization, Other)
  Sender: TRAVERE THERAPEUTICS
  Company Number: US-TRAVERE-2025TVT00181

PATIENT
  Age: 23 Year
  Sex: Male
  Weight: 84.4 kg

DRUGS (11)
  1. FILSPARI [Suspect]
     Active Substance: SPARSENTAN
     Indication: IgA nephropathy
     Dosage: LOT NUMBER: 1976071, EXPIRY DATE: 30-MAY-2026
     Route: 048
     Dates: start: 20241028, end: 202504
  2. FILSPARI [Suspect]
     Active Substance: SPARSENTAN
     Indication: Chronic kidney disease
  3. MYCOPHENOLIC ACID [Concomitant]
     Active Substance: MYCOPHENOLIC ACID
  4. JARDIANCE [Concomitant]
     Active Substance: EMPAGLIFLOZIN
  5. AMLODIPINE [Concomitant]
     Active Substance: AMLODIPINE BESYLATE
  6. ZOLOFT [Concomitant]
     Active Substance: SERTRALINE HYDROCHLORIDE
  7. BUSPIRONE [Concomitant]
     Active Substance: BUSPIRONE HYDROCHLORIDE
  8. PREDNISONE [Concomitant]
     Active Substance: PREDNISONE
  9. XARELTO [Concomitant]
     Active Substance: RIVAROXABAN
  10. NALOXONE [Concomitant]
     Active Substance: NALOXONE
  11. ACETAMINOPHEN\HYDROCODONE [Concomitant]
     Active Substance: ACETAMINOPHEN\HYDROCODONE

REACTIONS (15)
  - Loss of consciousness [None]
  - Haematochezia [Unknown]
  - Seizure [Unknown]
  - Dizziness [Unknown]
  - Tremor [None]
  - Nausea [None]
  - Hypoacusis [Unknown]
  - Vision blurred [Recovering/Resolving]
  - Eyelid discolouration [Unknown]
  - Lip discolouration [Unknown]
  - Paraesthesia [Unknown]
  - Hypoaesthesia [Unknown]
  - Abdominal pain upper [Unknown]
  - Vomiting [None]
  - Nervous system disorder [None]

NARRATIVE: CASE EVENT DATE: 20250430
